FAERS Safety Report 9529720 (Version 1)
Quarter: 2013Q3

REPORT INFORMATION
  Report Type: Spontaneous
  Country: US (occurrence: US)
  Receive Date: 20130917
  Receipt Date: 20130917
  Transmission Date: 20140515
  Serious: No
  Sender: FDA-Public Use
  Company Number: US-SANOFI-AVENTIS-2013SA045006

PATIENT
  Age: 59 Year
  Sex: Male
  Weight: 73 kg

DRUGS (3)
  1. DDAVP [Suspect]
     Indication: DIABETES INSIPIDUS
     Dosage: TAKEN FROM- ABOUT FOUR MONTHS
     Route: 065
  2. FAMOTIDINE [Suspect]
     Route: 065
     Dates: start: 20130415
  3. FLUCONAZOLE [Suspect]
     Route: 048
     Dates: start: 20130422, end: 20130424

REACTIONS (1)
  - Therapeutic response prolonged [Unknown]
